FAERS Safety Report 5399752-6 (Version None)
Quarter: 2007Q3

REPORT INFORMATION
  Report Type: 
  Country: None (occurrence: None)
  Receive Date: 20070727
  Receipt Date: 20070723
  Transmission Date: 20080115
  Serious: Yes (Other)
  Sender: FDA-Public Use
  Company Number: US-PFIZER INC-2007060483

PATIENT
  Age: 7 Year
  Sex: Male

DRUGS (3)
  1. ZYRTEC [Suspect]
     Indication: HYPERSENSITIVITY
     Dosage: DAILY DOSE:1MG
     Dates: start: 20060101, end: 20070501
  2. ALL OTHER THERAPEUTIC PRODUCTS [Concomitant]
  3. FLUTICASONE PROPIONATE [Concomitant]

REACTIONS (7)
  - ABNORMAL BEHAVIOUR [None]
  - CONTUSION [None]
  - CONVULSION [None]
  - FALL [None]
  - HYPERSENSITIVITY [None]
  - SOMNOLENCE [None]
  - TREMOR [None]
